FAERS Safety Report 5676936-0 (Version None)
Quarter: 2008Q1

REPORT INFORMATION
  Report Type: 
  Country: None (occurrence: None)
  Receive Date: 20080324
  Receipt Date: 20080317
  Transmission Date: 20080703
  Serious: Yes (Death)
  Sender: FDA-Public Use
  Company Number: AT-ABBOTT-08P-009-0441541-00

PATIENT
  Age: 47 Year
  Sex: Male
  Weight: 77.5 kg

DRUGS (19)
  1. ZEMPLAR [Suspect]
     Indication: HYPERPARATHYROIDISM
     Route: 042
     Dates: start: 20080123
  2. ZEMPLAR [Suspect]
     Route: 042
     Dates: start: 20071015, end: 20071121
  3. ZEMPLAR [Suspect]
     Route: 042
     Dates: start: 20071121, end: 20080123
  4. ARNESEP [Concomitant]
     Indication: DRUG USE FOR UNKNOWN INDICATION
     Dates: start: 20071015, end: 20080204
  5. CLOPIDOGREL [Concomitant]
     Indication: DRUG USE FOR UNKNOWN INDICATION
     Dates: end: 20080204
  6. CYCLOSPORINE [Concomitant]
     Indication: DRUG USE FOR UNKNOWN INDICATION
     Dates: end: 20080124
  7. CYCLOSPORINE [Concomitant]
     Dates: start: 20080125, end: 20080204
  8. SELOKEN RETARD [Concomitant]
     Indication: DRUG USE FOR UNKNOWN INDICATION
     Dates: end: 20080204
  9. ASPIRIN [Concomitant]
     Indication: DRUG USE FOR UNKNOWN INDICATION
     Dates: end: 20080204
  10. CALCIUM ACETATE [Concomitant]
     Indication: DRUG USE FOR UNKNOWN INDICATION
  11. GLYCERYL TRINITRATE [Concomitant]
     Indication: DRUG USE FOR UNKNOWN INDICATION
     Dates: start: 20071119, end: 20080204
  12. FERRLECIT [Concomitant]
     Indication: DRUG USE FOR UNKNOWN INDICATION
     Dates: start: 20080109, end: 20080204
  13. CINACALCET [Concomitant]
     Indication: DRUG USE FOR UNKNOWN INDICATION
     Dates: start: 20071023, end: 20071125
  14. CINACALCET [Concomitant]
     Dates: start: 20071126, end: 20080127
  15. CINACALCET [Concomitant]
     Dates: start: 20080128, end: 20080204
  16. SEVELAMER [Concomitant]
     Indication: DRUG USE FOR UNKNOWN INDICATION
     Dates: start: 20080125, end: 20080204
  17. MYCOPHENOLATE MOFETIL [Concomitant]
     Indication: DRUG USE FOR UNKNOWN INDICATION
     Dates: start: 20071215
  18. FUROSEMIDE [Concomitant]
     Indication: DRUG USE FOR UNKNOWN INDICATION
     Dates: end: 20080204
  19. ESOMEPRAZOLE MAGNESIUM [Concomitant]
     Indication: DRUG USE FOR UNKNOWN INDICATION
     Dates: end: 20080204

REACTIONS (1)
  - CARDIAC FAILURE [None]
